FAERS Safety Report 6324257-5 (Version None)
Quarter: 2009Q3

REPORT INFORMATION
  Report Type: 
  Country: None (occurrence: None)
  Receive Date: 20090824
  Receipt Date: 20090422
  Transmission Date: 20100115
  Serious: No
  Sender: FDA-Public Use
  Company Number: US-ABBOTT-09P-163-0569811-00

PATIENT
  Sex: Female
  Weight: 63.56 kg

DRUGS (13)
  1. NIASPAN [Suspect]
     Indication: BLOOD CHOLESTEROL INCREASED
     Dates: start: 20090101
  2. SEPTRA [Concomitant]
     Indication: PROPHYLAXIS
  3. SEPTRA [Concomitant]
     Indication: KIDNEY INFECTION
  4. ZANTAC [Concomitant]
     Indication: HIATUS HERNIA
  5. DIAZIDE [Concomitant]
     Indication: HYPERTENSION
     Dosage: 50/25MG
  6. ATIVAN [Concomitant]
     Indication: DRUG USE FOR UNKNOWN INDICATION
  7. POTASSIUM CHLORIDE [Concomitant]
     Indication: RENAL DISORDER
  8. ULTRAM [Concomitant]
     Indication: ARTHRITIS
  9. PROZAC [Concomitant]
     Indication: DEPRESSION
  10. NORVASC [Concomitant]
     Indication: HYPERTENSION
  11. ATENOLOL [Concomitant]
     Indication: HYPERTENSION
  12. ALOPURINOL [Concomitant]
     Indication: GOUT
  13. LOVAZA [Concomitant]
     Indication: BLOOD CHOLESTEROL

REACTIONS (2)
  - PRURITUS [None]
  - SCAR [None]
